FAERS Safety Report 6050928-4 (Version None)
Quarter: 2009Q1

REPORT INFORMATION
  Report Type: 
  Country: None (occurrence: None)
  Receive Date: 20090121
  Receipt Date: 20090121
  Transmission Date: 20090719
  Serious: Yes (Hospitalization)
  Sender: FDA-Public Use
  Company Number: None

PATIENT
  Age: 64 Year
  Sex: Male
  Weight: 69.8 kg

DRUGS (6)
  1. RITUXAN [Suspect]
  2. THALIDOMIDE [Suspect]
  3. PREDNISONE [Suspect]
  4. ETOPOSIDE [Suspect]
  5. PROCARBAZINE [Suspect]
  6. CYTOXAN [Suspect]

REACTIONS (6)
  - HYPOPHAGIA [None]
  - HYPOVOLAEMIA [None]
  - MALAISE [None]
  - NEUTROPENIA [None]
  - TACHYCARDIA [None]
  - VOMITING [None]
